FAERS Safety Report 12211322 (Version 3)
Quarter: 2017Q3

REPORT INFORMATION
  Report Type: Spontaneous
  Country: US (occurrence: US)
  Receive Date: 20160325
  Receipt Date: 20170706
  Transmission Date: 20171127
  Serious: No
  Sender: FDA-Public Use
  Company Number: US-PFIZER INC-2016138979

PATIENT
  Age: 67 Year
  Sex: Female

DRUGS (3)
  1. TRIFLURIDINE. [Suspect]
     Active Substance: TRIFLURIDINE
     Indication: HERPES OPHTHALMIC
     Dosage: 1 DROP 2-5 TIMES A DAY IN THE LEFT EYE AS NEEDED
     Dates: start: 20121215, end: 20130630
  2. TRIFLURIDINE. [Suspect]
     Active Substance: TRIFLURIDINE
     Indication: OPHTHALMIC HERPES SIMPLEX
  3. ACYCLOVIR. [Concomitant]
     Active Substance: ACYCLOVIR
     Dosage: UNK
     Dates: start: 200006

REACTIONS (4)
  - Eye inflammation [Unknown]
  - Eye irritation [Recovered/Resolved]
  - Ocular hyperaemia [Recovered/Resolved]
  - Eye pain [Unknown]

NARRATIVE: CASE EVENT DATE: 201212
